FAERS Safety Report 20890198 (Version 2)
Quarter: 2022Q2

REPORT INFORMATION
  Report Type: Spontaneous
  Country: US (occurrence: US)
  Receive Date: 20220530
  Receipt Date: 20220609
  Transmission Date: 20220721
  Serious: No
  Sender: FDA-Public Use
  Company Number: US-NOVARTISTESTPH-NVSC2022US123244

PATIENT
  Sex: Female
  Weight: 59 kg

DRUGS (4)
  1. COMBIPATCH [Suspect]
     Active Substance: ESTRADIOL\NORETHINDRONE ACETATE
     Indication: Menopausal symptoms
     Dosage: UNK
     Route: 062
     Dates: start: 20211005, end: 202202
  2. VIVELLE-DOT [Suspect]
     Active Substance: ESTRADIOL
     Indication: Product used for unknown indication
     Dosage: UNK
     Route: 062
     Dates: start: 202203
  3. VIVELLE-DOT [Suspect]
     Active Substance: ESTRADIOL
     Dosage: 0.05 MG, Q2W
     Route: 065
  4. SYNTHROID [Concomitant]
     Active Substance: LEVOTHYROXINE SODIUM
     Indication: Product used for unknown indication
     Dosage: 88 UG, QD, 1 PILL
     Route: 048

REACTIONS (4)
  - Blister [Recovered/Resolved]
  - Skin irritation [Recovering/Resolving]
  - Device defective [Unknown]
  - Incorrect dose administered [Unknown]
